FAERS Safety Report 5177079-5 (Version None)
Quarter: 2006Q4

REPORT INFORMATION
  Report Type: 
  Country: None (occurrence: None)
  Receive Date: 20061207
  Receipt Date: 20061130
  Transmission Date: 20070319
  Serious: Yes (Hospitalization, Other)
  Sender: FDA-Public Use
  Company Number: HQWYE945213DEC04

PATIENT
  Age: 52 Year
  Sex: Male
  Weight: 80.63 kg

DRUGS (19)
  1. RAPAMUNE [Suspect]
     Indication: PROPHYLAXIS AGAINST TRANSPLANT REJECTION
     Dosage: DOSE VARIES (CONCENTRATION CONTROLLED); 2 MG, 2 MG, AND 1 MG ALTERNATING ON A CYCLICAL BASIS
     Dates: start: 20030409
  2. RAPAMUNE [Suspect]
  3. HYDRALAZALINE [Concomitant]
  4. LASIX [Concomitant]
  5. CLONIDINE [Concomitant]
  6. METOPROLOL SUCCINATE [Concomitant]
  7. PREDNISONE TAB [Concomitant]
  8. GLIPIZIDE [Concomitant]
  9. FOLIC ACID [Concomitant]
  10. FISH OIL, HYDROGENATED [Concomitant]
  11. LIPITOR [Concomitant]
  12. ASPIRIN [Concomitant]
  13. IMDUR [Concomitant]
  14. LANSOPRAZOLE [Concomitant]
  15. MAGNESIUM OXIDE [Concomitant]
  16. URSODIOL (URSODEOXYCHOLIC ACID) [Concomitant]
  17. SODIUM BICARBONATE [Concomitant]
  18. ALLOPURINOL SODIUM [Concomitant]
  19. ZOLPIDEM TARTRATE [Concomitant]

REACTIONS (2)
  - RENAL FAILURE [None]
  - RENAL VESSEL DISORDER [None]
